FAERS Safety Report 8033183-5 (Version None)
Quarter: 2011Q4

REPORT INFORMATION
  Report Type: 
  Country: None (occurrence: None)
  Receive Date: 20111202
  Receipt Date: 20101216
  Transmission Date: 20120403
  Serious: Yes (Other)
  Sender: FDA-Public Use
  Company Number: WAES 0807USA00767

PATIENT
  Age: 51 Year
  Sex: Female
  Weight: 57.6068 kg

DRUGS (1)
  1. FOSAMAX [Suspect]
     Indication: OSTEOPOROSIS
     Dosage: 70 MG/UNK/PO
     Route: 048
     Dates: start: 20050701, end: 20060801

REACTIONS (14)
  - MAMMOGRAM ABNORMAL [None]
  - HELICOBACTER INFECTION [None]
  - COUGH [None]
  - DUODENITIS [None]
  - ORAL DISORDER [None]
  - OSTEONECROSIS [None]
  - TOOTH DISORDER [None]
  - DYSPEPSIA [None]
  - SINUS HEADACHE [None]
  - OROPHARYNGEAL PAIN [None]
  - DYSPNOEA [None]
  - BONE DENSITY DECREASED [None]
  - NASAL DISORDER [None]
  - ORAL INFECTION [None]
